FAERS Safety Report 5135650-0 (Version None)
Quarter: 2006Q4

REPORT INFORMATION
  Report Type: 
  Country: None (occurrence: None)
  Receive Date: 20061026
  Receipt Date: 20061006
  Transmission Date: 20070319
  Serious: Yes (Other)
  Sender: FDA-Public Use
  Company Number: JP-ROCHE-467692

PATIENT
  Age: 75 Year
  Sex: Female

DRUGS (14)
  1. TAMIFLU [Suspect]
     Route: 048
     Dates: start: 20060302, end: 20060307
  2. AMINOPHYLLINE [Suspect]
     Indication: DRUG USE FOR UNKNOWN INDICATION
     Route: 042
     Dates: start: 20060227, end: 20060227
  3. AMINOPHYLLINE [Suspect]
     Dosage: DOSAGE INCREASED.
     Route: 042
     Dates: start: 20060228, end: 20060228
  4. AMINOPHYLLINE [Suspect]
     Route: 042
     Dates: start: 20060301, end: 20060301
  5. AMINOPHYLLINE [Suspect]
     Route: 042
     Dates: start: 20060302
  6. SINGULAIR [Concomitant]
     Route: 048
  7. GOODMIN [Concomitant]
     Route: 048
  8. SPIROPENT [Concomitant]
     Dosage: FORM REPORTED AS ORAL FORMULATION (NOT OTHERWISE SPECIFIED).
     Route: 048
  9. FAMOTIDINE [Concomitant]
  10. MERCAZOLE [Concomitant]
  11. SPELEAR [Concomitant]
     Dosage: FORM REPORTED AS ORAL FORMULATION (NOT OTHERWISE SPECIFIED).
     Route: 048
  12. PREDNISOLONE [Concomitant]
     Dosage: ON 03 MARCH 2006, PREDNISOLONE WAS REDUCED TO 20 MG. ON 07 MARCH 2006, PREDNISOLONE WAS REDUCED TO +
     Dates: start: 20060302
  13. AZITHROMYCIN [Concomitant]
     Dosage: FORM REPORTED AS ORAL FORMULATION (NOT OTHERWISE SPECIFIED).
     Route: 048
     Dates: start: 20060303
  14. NAPA [Concomitant]
     Dosage: GENERIC REPORTED AS ACETAMINOPHEN.
     Dates: start: 20060302

REACTIONS (7)
  - CRYING [None]
  - DECREASED APPETITE [None]
  - DELIRIUM [None]
  - DRUG INTERACTION [None]
  - INCONTINENCE [None]
  - INFLUENZA [None]
  - PYREXIA [None]
